FAERS Safety Report 11372079 (Version 2)
Quarter: 2015Q4

REPORT INFORMATION
  Report Type: Report from Study
  Country: AU (occurrence: AU)
  Receive Date: 20150812
  Receipt Date: 20151106
  Transmission Date: 20160304
  Serious: Yes (Death, Other)
  Sender: FDA-Public Use
  Company Number: AU-GILEAD-2015-0166948

PATIENT
  Sex: Female

DRUGS (11)
  1. FRUSEMIDE                          /00032601/ [Concomitant]
     Active Substance: FUROSEMIDE
     Dosage: 10 MG, QID
  2. PANTOPRAZOLE [Concomitant]
     Active Substance: PANTOPRAZOLE SODIUM
     Dosage: 20 MG, UNK
  3. NITROFURANTOIN. [Concomitant]
     Active Substance: NITROFURANTOIN
     Dosage: 20 MG, UNK
  4. AMBRISENTAN [Suspect]
     Active Substance: AMBRISENTAN
     Indication: PULMONARY HYPERTENSION
     Dosage: 5 MG, QD
     Route: 048
     Dates: start: 20130606, end: 20150728
  5. KCL [Concomitant]
     Active Substance: POTASSIUM CHLORIDE
     Dosage: 10 MMOL, UNK
  6. MILRINONE LACTATE. [Concomitant]
     Active Substance: MILRINONE LACTATE
  7. SILDENAFIL. [Concomitant]
     Active Substance: SILDENAFIL
     Dosage: 12.5 G, TID
  8. SPIRONOLACTONE. [Concomitant]
     Active Substance: SPIRONOLACTONE
     Dosage: 12.5 G, BID
  9. CIPROFLOXACIN. [Concomitant]
     Active Substance: CIPROFLOXACIN
     Dosage: 200 MG, BID
  10. VITAMIN K [Concomitant]
     Active Substance: PHYTONADIONE
     Dosage: 0.4 ML, UNK
  11. PHYTOMENADIONE [Concomitant]
     Active Substance: PHYTONADIONE
     Dosage: 4 G, QD

REACTIONS (2)
  - Seizure [Unknown]
  - Cardio-respiratory arrest [Fatal]

NARRATIVE: CASE EVENT DATE: 20150729
